FAERS Safety Report 5739224-X (Version None)
Quarter: 2008Q2

REPORT INFORMATION
  Report Type: 
  Country: None (occurrence: None)
  Receive Date: 20080515
  Receipt Date: 20080507
  Transmission Date: 20081010
  Serious: Yes (Other)
  Sender: FDA-Public Use
  Company Number: PHHY2008CA03072

PATIENT

DRUGS (2)
  1. ACE INHIBITOR NOS [Concomitant]
  2. CO-DIOVAN T32564+ [Suspect]
     Dosage: 80/12.5 MG, QD
     Route: 048

REACTIONS (2)
  - BLOOD PRESSURE SYSTOLIC INCREASED [None]
  - MICROALBUMINURIA [None]
